FAERS Safety Report 18295001 (Version 2)
Quarter: 2021Q2

REPORT INFORMATION
  Report Type: Spontaneous
  Country: US (occurrence: US)
  Receive Date: 20200922
  Receipt Date: 20210630
  Transmission Date: 20210717
  Serious: Yes (Hospitalization)
  Sender: FDA-Public Use
  Company Number: US-GLOBAL BLOOD THERAPEUTICS INC-US-GBT-20-01995

PATIENT
  Age: 33 Year
  Sex: Female

DRUGS (3)
  1. OXBRYTA [Suspect]
     Active Substance: VOXELOTOR
     Indication: SICKLE CELL DISEASE
     Route: 048
     Dates: start: 20200713
  2. HYDROXYUREA. [Concomitant]
     Active Substance: HYDROXYUREA
     Indication: PRODUCT USED FOR UNKNOWN INDICATION
     Dosage: NOT PROVIDED
  3. FOLIC ACID. [Concomitant]
     Active Substance: FOLIC ACID
     Indication: PRODUCT USED FOR UNKNOWN INDICATION
     Dosage: NOT PROVIDED

REACTIONS (13)
  - Diarrhoea [Recovering/Resolving]
  - Fatigue [Unknown]
  - Abdominal discomfort [Recovering/Resolving]
  - Decreased appetite [Recovering/Resolving]
  - Sickle cell anaemia with crisis [Unknown]
  - Dizziness [Recovering/Resolving]
  - Pneumonia [Recovered/Resolved]
  - Eczema [Unknown]
  - Pruritus [Recovering/Resolving]
  - Abdominal pain upper [Recovering/Resolving]
  - Product dose omission issue [Unknown]
  - Thirst [Unknown]
  - Headache [Unknown]

NARRATIVE: CASE EVENT DATE: 202007
